FAERS Safety Report 12167589 (Version 1)
Quarter: 2016Q1

REPORT INFORMATION
  Report Type: Spontaneous
  Country: US (occurrence: None)
  Receive Date: 20160309
  Receipt Date: 20160309
  Transmission Date: 20160526
  Serious: No
  Sender: FDA-Public Use
  Company Number: None

PATIENT
  Age: 59 Year
  Sex: Female

DRUGS (1)
  1. ESTRADIOL TRANSDERMAL SYSTEM [Suspect]
     Active Substance: ESTRADIOL
     Indication: OESTROGEN REPLACEMENT THERAPY
     Dosage: 0.05 MG/DAY 1 PATCH/WK TRANSDERMAL/TOP
     Route: 062
     Dates: start: 20160203

REACTIONS (2)
  - Application site discolouration [None]
  - Application site bruise [None]

NARRATIVE: CASE EVENT DATE: 20160308
